FAERS Safety Report 22370825 (Version 1)
Quarter: 2023Q2

REPORT INFORMATION
  Report Type: Report from Study
  Country: IT (occurrence: IT)
  Receive Date: 20230526
  Receipt Date: 20230526
  Transmission Date: 20230722
  Serious: Yes (Other)
  Sender: FDA-Public Use
  Company Number: IT-SUN PHARMACEUTICAL INDUSTRIES LTD-2023RR-389857

PATIENT
  Age: 23 Year

DRUGS (2)
  1. TEMOZOLOMIDE [Suspect]
     Active Substance: TEMOZOLOMIDE
     Indication: Ewing^s sarcoma
     Dosage: 100 MILLIGRAM/SQ. METER, DAILY, 2 COURSES
     Route: 048
  2. IRINOTECAN [Suspect]
     Active Substance: IRINOTECAN
     Indication: Ewing^s sarcoma
     Dosage: 50 MILLIGRAM/SQ. METER, DAILY, FOR 5 CONSECUTIVE DAYS (DAYS 1-5) EVERY 21 DAYS
     Route: 042

REACTIONS (1)
  - Disease progression [Unknown]
